FAERS Safety Report 23146299 (Version 1)
Quarter: 2023Q4

REPORT INFORMATION
  Report Type: Report from Study
  Country: DE (occurrence: DE)
  Receive Date: 20231104
  Receipt Date: 20231104
  Transmission Date: 20240110
  Serious: Yes (Congenital Anomaly)
  Sender: FDA-Public Use
  Company Number: DE-VKT-000277

PATIENT
  Age: 35 Week
  Sex: Female

DRUGS (4)
  1. LEVETIRACETAM [Suspect]
     Active Substance: LEVETIRACETAM
     Indication: Foetal exposure during pregnancy
     Route: 065
  2. FOLIC ACID [Concomitant]
     Active Substance: FOLIC ACID
     Indication: Foetal exposure during pregnancy
     Route: 065
  3. PROGESTERONE [Concomitant]
     Active Substance: PROGESTERONE
     Indication: Foetal exposure during pregnancy
     Route: 065
  4. Tocolytic [Concomitant]
     Indication: Foetal exposure during pregnancy
     Route: 065

REACTIONS (4)
  - Small for dates baby [Unknown]
  - Haemangioma [Unknown]
  - Foetal exposure during pregnancy [Unknown]
  - Atrial septal defect [Unknown]
